FAERS Safety Report 5508894-3 (Version None)
Quarter: 2007Q4

REPORT INFORMATION
  Report Type: 
  Country: None (occurrence: None)
  Receive Date: 20071107
  Receipt Date: 20071017
  Transmission Date: 20080405
  Serious: No
  Sender: FDA-Public Use
  Company Number: PHBS2007FI16692

PATIENT
  Sex: Male

DRUGS (6)
  1. RECLAST [Suspect]
     Indication: OSTEOPOROSIS
     Dosage: 5 MG, UNK
     Dates: start: 20070831
  2. PROTELOS [Concomitant]
     Indication: OSTEOPOROSIS
     Dosage: 2 G/DAY
     Dates: start: 20070101
  3. NEUROTOL [Concomitant]
     Dosage: 200 TO 800 MG/DAY
     Dates: start: 20050101
  4. CALCIUM [Concomitant]
  5. VITAMIN D [Concomitant]
  6. LEVOTHYROXINE SODIUM [Concomitant]
     Indication: HYPOTHYROIDISM

REACTIONS (4)
  - DRY SKIN [None]
  - ERYTHEMA [None]
  - HYPOCALCAEMIA [None]
  - PRURITUS [None]
